FAERS Safety Report 23677140 (Version 3)
Quarter: 2024Q2

REPORT INFORMATION
  Report Type: Spontaneous
  Country: US (occurrence: US)
  Receive Date: 20240327
  Receipt Date: 20240424
  Transmission Date: 20240716
  Serious: No
  Sender: FDA-Public Use
  Company Number: US-PFIZER INC-202400067118

PATIENT
  Age: 15 Year
  Sex: Male
  Weight: 46.27 kg

DRUGS (1)
  1. GENOTROPIN [Suspect]
     Active Substance: SOMATROPIN
     Indication: Hypothalamo-pituitary disorder
     Dosage: ONE TIME A DAY FOR SIX DAYS A WEEK

REACTIONS (3)
  - Drug dose omission by device [Unknown]
  - Device failure [Unknown]
  - Device mechanical issue [Unknown]
